FAERS Safety Report 9516747 (Version 2)
Quarter: 2014Q1

REPORT INFORMATION
  Report Type: Spontaneous
  Country: US (occurrence: None)
  Receive Date: 20130305
  Receipt Date: 20140306
  Transmission Date: 20141002
  Serious: Yes (Other)
  Sender: FDA-Public Use
  Company Number: 163-21880-12120721

PATIENT
  Age: 81 Year
  Sex: Female

DRUGS (1)
  1. REVLIMID (LENALIDOMIDE) (CAPSULES) [Suspect]
     Indication: AMYLOIDOSIS
     Dosage: 25 MG, 21 IN 28 D, PO
     Route: 048
     Dates: start: 20121128, end: 20121202

REACTIONS (2)
  - Rash pruritic [None]
  - Swelling [None]
